FAERS Safety Report 16396475 (Version 1)
Quarter: 2019Q2

REPORT INFORMATION
  Report Type: Report from Study
  Country: None (occurrence: CA)
  Receive Date: 20190605
  Receipt Date: 20190605
  Transmission Date: 20190711
  Serious: Yes (Other)
  Sender: FDA-Public Use
  Company Number: CA-ABBVIE-19K-028-2806157-00

PATIENT
  Sex: Male

DRUGS (2)
  1. HUMIRA [Suspect]
     Active Substance: ADALIMUMAB
     Route: 058
  2. HUMIRA [Suspect]
     Active Substance: ADALIMUMAB
     Indication: CROHN^S DISEASE
     Route: 058
     Dates: start: 20170223

REACTIONS (5)
  - Post procedural discharge [Recovering/Resolving]
  - Skin infection [Not Recovered/Not Resolved]
  - Alopecia [Not Recovered/Not Resolved]
  - Wound dehiscence [Recovering/Resolving]
  - Ingrown hair [Not Recovered/Not Resolved]

NARRATIVE: CASE EVENT DATE: 2019
